FAERS Safety Report 4953750-2 (Version None)
Quarter: 2006Q1

REPORT INFORMATION
  Report Type: 
  Country: None (occurrence: None)
  Receive Date: 20060327
  Receipt Date: 20060316
  Transmission Date: 20060701
  Serious: Yes (Other)
  Sender: FDA-Public Use
  Company Number: SE-JNJFOC-20050203817

PATIENT
  Sex: Female

DRUGS (11)
  1. REMICADE [Suspect]
     Indication: CROHN'S DISEASE
     Route: 042
  2. IMUREL [Concomitant]
  3. DEXOFEN [Concomitant]
  4. IMOVANE [Concomitant]
     Route: 048
  5. MOVICOL [Concomitant]
  6. MOVICOL [Concomitant]
  7. MOVICOL [Concomitant]
  8. MOVICOL [Concomitant]
  9. ASACOL [Concomitant]
  10. INOLAXOL [Concomitant]
  11. ACETAMINOPHEN [Concomitant]

REACTIONS (5)
  - COUGH [None]
  - MYALGIA [None]
  - PERICARDITIS [None]
  - TUBERCULOSIS [None]
  - VIRAL INFECTION [None]
